FAERS Safety Report 4384671-4 (Version None)
Quarter: 2004Q2

REPORT INFORMATION
  Report Type: 
  Country: None (occurrence: None)
  Receive Date: 20040621
  Receipt Date: 20040615
  Transmission Date: 20050107
  Serious: Yes (Hospitalization)
  Sender: FDA-Public Use
  Company Number: 200409077

PATIENT
  Age: 83 Year
  Sex: Male

DRUGS (12)
  1. STREPTASE [Suspect]
     Indication: CHEST PAIN
     Dosage: 1.5 MIU DAILY IV
     Route: 042
     Dates: start: 20040419, end: 20040419
  2. STREPTASE [Suspect]
     Indication: MYOCARDIAL INFARCTION
     Dosage: 1.5 MIU DAILY IV
     Route: 042
     Dates: start: 20040419, end: 20040419
  3. ASPIRIN [Suspect]
     Indication: MYOCARDIAL INFARCTION
     Dosage: 100 MG DAILY PO
     Route: 048
  4. ENOXAPARIN OR PLACEBO VS. HEPARIN OR PLACEBO [Suspect]
     Indication: MYOCARDIAL INFARCTION
     Dosage: IV
     Route: 042
     Dates: start: 20040419, end: 20040421
  5. METOPROLOL TARTRATE [Concomitant]
  6. ATORVASTATIN CALCIUM [Concomitant]
  7. DIGOXIN [Concomitant]
  8. ALDOMET [Concomitant]
  9. BI PREDONIUM [Concomitant]
  10. FLIXOTIDE ^GLAXO^ [Concomitant]
  11. VENTOLIN [Concomitant]
  12. SPIRONOLACTONE [Concomitant]

REACTIONS (10)
  - BLOOD BILIRUBIN INCREASED [None]
  - CARDIOMEGALY [None]
  - CIRCULATORY COLLAPSE [None]
  - HAEMOPTYSIS [None]
  - MITRAL VALVE INCOMPETENCE [None]
  - PNEUMONIA HAEMOPHILUS [None]
  - PULMONARY OEDEMA [None]
  - RENAL IMPAIRMENT [None]
  - VENTRICULAR TACHYCARDIA [None]
  - WHITE BLOOD CELL COUNT INCREASED [None]
